FAERS Safety Report 13521823 (Version 3)
Quarter: 2017Q3

REPORT INFORMATION
  Report Type: Report from Study
  Country: US (occurrence: US)
  Receive Date: 20170508
  Receipt Date: 20170724
  Transmission Date: 20171127
  Serious: Yes (Hospitalization, Other)
  Sender: FDA-Public Use
  Company Number: US-MALLINCKRODT-T201700301

PATIENT
  Sex: Female

DRUGS (3)
  1. REPOSITORY CORTICOTROPIN INJECTION [Suspect]
     Active Substance: CORTICOTROPIN
     Indication: PROTEINURIA
     Dosage: 80 UNITS / 1 ML, MONDAY/FRIDAY
     Route: 058
     Dates: start: 20161202
  2. REPOSITORY CORTICOTROPIN INJECTION [Suspect]
     Active Substance: CORTICOTROPIN
     Indication: NEPHROTIC SYNDROME
     Dosage: 80 UNITS/ML  2 TIMES A WEEK
     Route: 030
     Dates: start: 20161202
  3. REPOSITORY CORTICOTROPIN INJECTION [Suspect]
     Active Substance: CORTICOTROPIN
     Indication: CHRONIC KIDNEY DISEASE

REACTIONS (9)
  - Eye swelling [Not Recovered/Not Resolved]
  - Renal function test abnormal [Recovering/Resolving]
  - Respiratory tract infection [Recovering/Resolving]
  - Dehydration [Recovering/Resolving]
  - Lacrimation increased [Not Recovered/Not Resolved]
  - Weight increased [Unknown]
  - Fatigue [Unknown]
  - Blood creatinine increased [Recovering/Resolving]
  - Dry eye [Not Recovered/Not Resolved]
